FAERS Safety Report 18299972 (Version 1)
Quarter: 2020Q3

REPORT INFORMATION
  Report Type: Report from Study
  Country: US (occurrence: US)
  Receive Date: 20200922
  Receipt Date: 20200922
  Transmission Date: 20201103
  Serious: Yes (Hospitalization, Other)
  Sender: FDA-Public Use
  Company Number: US-BRISTOL-MYERS SQUIBB COMPANY-BMS-2020-077138

PATIENT
  Age: 60 Year
  Sex: Male
  Weight: 50.2 kg

DRUGS (1)
  1. NIVOLUMAB [Suspect]
     Active Substance: NIVOLUMAB
     Indication: GASTROINTESTINAL NEOPLASM
     Route: 065

REACTIONS (1)
  - Incarcerated inguinal hernia [Unknown]

NARRATIVE: CASE EVENT DATE: 20200719
